FAERS Safety Report 6764267-7 (Version None)
Quarter: 2010Q2

REPORT INFORMATION
  Report Type: 
  Country: None (occurrence: None)
  Receive Date: 20100610
  Receipt Date: 20100429
  Transmission Date: 20101027
  Serious: Yes (Death, Other)
  Sender: FDA-Public Use
  Company Number: US-BAXTER-2010BH003515

PATIENT
  Age: 86 Year
  Sex: Female

DRUGS (42)
  1. HEPARIN SODIUM INJECTION [Suspect]
     Indication: INDWELLING CATHETER MANAGEMENT
     Route: 042
     Dates: start: 20080411, end: 20080413
  2. SODIUM CHLORIDE 0.9% IN PLASTIC CONTAINER [Concomitant]
     Indication: DRUG USE FOR UNKNOWN INDICATION
     Route: 042
  3. LEVAQUIN [Concomitant]
     Indication: DRUG USE FOR UNKNOWN INDICATION
     Route: 042
  4. FLAGYL I.V. RTU [Concomitant]
     Indication: DRUG USE FOR UNKNOWN INDICATION
     Route: 042
  5. DILAUDID [Concomitant]
     Indication: PAIN
     Route: 042
  6. ZOFRAN [Concomitant]
     Indication: VOMITING
     Route: 042
  7. LEVAQUIN [Concomitant]
     Route: 048
  8. TYLENOL [Concomitant]
     Indication: BODY TEMPERATURE INCREASED
     Route: 048
  9. HUMIBID LA [Concomitant]
     Indication: DRUG USE FOR UNKNOWN INDICATION
     Route: 048
  10. ROCEPHIN [Concomitant]
     Indication: DRUG USE FOR UNKNOWN INDICATION
     Route: 042
  11. AZITHROMYCIN [Concomitant]
     Indication: DRUG USE FOR UNKNOWN INDICATION
     Route: 042
  12. XOPENEX [Concomitant]
     Indication: DRUG USE FOR UNKNOWN INDICATION
     Route: 055
  13. PANTOPRAZOLE [Concomitant]
     Indication: DRUG USE FOR UNKNOWN INDICATION
     Route: 048
  14. ENOXAPARIN SODIUM [Concomitant]
     Indication: DRUG USE FOR UNKNOWN INDICATION
     Route: 058
  15. ZYVOX [Concomitant]
     Indication: DRUG USE FOR UNKNOWN INDICATION
     Route: 042
  16. MAXIPIME [Concomitant]
     Indication: DRUG USE FOR UNKNOWN INDICATION
     Route: 065
  17. OSELTAMIVIR PHOSPHATE [Concomitant]
     Indication: DRUG USE FOR UNKNOWN INDICATION
     Route: 048
  18. LACTINEX [Concomitant]
     Indication: DRUG USE FOR UNKNOWN INDICATION
     Route: 048
  19. ACETYLCYSTEINE [Concomitant]
     Indication: DRUG USE FOR UNKNOWN INDICATION
     Route: 055
  20. IBU-TAB [Concomitant]
     Indication: PAIN
     Route: 048
  21. K-DUR [Concomitant]
     Indication: DRUG USE FOR UNKNOWN INDICATION
     Route: 048
  22. COLACE [Concomitant]
     Indication: DRUG USE FOR UNKNOWN INDICATION
     Route: 048
  23. SENOKOT                                 /USA/ [Concomitant]
     Indication: DRUG USE FOR UNKNOWN INDICATION
     Route: 048
  24. FLEET PHOSPHATE ENEMA [Concomitant]
     Indication: DRUG USE FOR UNKNOWN INDICATION
     Route: 054
  25. SOLU-MEDROL [Concomitant]
     Indication: DRUG USE FOR UNKNOWN INDICATION
     Route: 042
  26. ZYVOX [Concomitant]
     Route: 048
  27. LORTAB [Concomitant]
     Indication: PAIN
     Route: 048
  28. LASIX [Concomitant]
     Indication: DRUG USE FOR UNKNOWN INDICATION
     Route: 042
  29. GASTROGRAFIN [Concomitant]
     Indication: DRUG USE FOR UNKNOWN INDICATION
     Route: 048
  30. IPRATROPIUM BROMIDE [Concomitant]
     Indication: DRUG USE FOR UNKNOWN INDICATION
     Route: 055
  31. PANTOPRAZOLE [Concomitant]
     Route: 042
  32. SOLU-MEDROL [Concomitant]
     Route: 042
  33. SOLU-MEDROL [Concomitant]
     Route: 042
  34. ZOSYN [Concomitant]
     Indication: DRUG USE FOR UNKNOWN INDICATION
     Route: 042
  35. NOVAMINE [Concomitant]
     Indication: DRUG USE FOR UNKNOWN INDICATION
     Route: 042
  36. DULCOLAX [Concomitant]
     Indication: DRUG USE FOR UNKNOWN INDICATION
     Route: 054
  37. TORADOL [Concomitant]
     Indication: PAIN
     Route: 042
  38. VANCOMYCIN HCL [Concomitant]
     Indication: DRUG USE FOR UNKNOWN INDICATION
     Route: 042
  39. SODIUM BICARBONATE [Concomitant]
     Indication: DRUG USE FOR UNKNOWN INDICATION
     Route: 042
  40. DOPAMINE HCL IN 5% DEXTROSE [Concomitant]
     Indication: DRUG USE FOR UNKNOWN INDICATION
     Route: 042
  41. AZITHROMYCIN [Concomitant]
     Route: 048
  42. PANTOPRAZOLE [Concomitant]
     Route: 042

REACTIONS (5)
  - BLOOD PRESSURE DECREASED [None]
  - CARDIAC ARREST [None]
  - NAUSEA [None]
  - UPPER GASTROINTESTINAL HAEMORRHAGE [None]
  - VOMITING [None]
